FAERS Safety Report 8617377-3 (Version None)
Quarter: 2012Q3

REPORT INFORMATION
  Report Type: 
  Country: None (occurrence: None)
  Receive Date: 20120823
  Receipt Date: 20120727
  Transmission Date: 20120928
  Serious: Yes (Hospitalization)
  Sender: FDA-Public Use
  Company Number: JP-009507513-2012SP030760

PATIENT

DRUGS (32)
  1. PEG-INTRON [Suspect]
     Indication: HEPATITIS C
     Dosage: 1.5MCG/KG/WEEK
     Route: 058
     Dates: start: 20120406
  2. ANTIVIRAL (UNSPECIFIED) [Suspect]
     Dosage: 500 MG, QD
     Route: 048
     Dates: start: 20120414, end: 20120515
  3. ANTIVIRAL (UNSPECIFIED) [Suspect]
     Dosage: 500 MG, QD
     Route: 048
     Dates: start: 20120518
  4. NEXIUM [Concomitant]
     Indication: GASTRIC ULCER
     Dosage: FORMULATION : POR
     Route: 048
  5. GASLON N [Concomitant]
     Route: 048
  6. ALLEGRA [Concomitant]
     Indication: PROPHYLAXIS
     Dosage: FORMULATION : POR
     Route: 048
     Dates: start: 20120406
  7. CONIEL [Concomitant]
     Dosage: FORMULATION:POR
     Route: 048
     Dates: start: 20120101, end: 20120427
  8. TELAVIC [Suspect]
     Route: 048
     Dates: start: 20120410, end: 20120413
  9. ANTIVIRAL (UNSPECIFIED) [Suspect]
     Indication: HEPATITIS C
     Dosage: 1500 MG, QD
     Route: 048
     Dates: start: 20120406, end: 20120409
  10. TELAVIC [Suspect]
     Route: 048
     Dates: start: 20120518, end: 20120601
  11. POTASSIUM CHLORIDE [Concomitant]
     Route: 042
     Dates: start: 20120409
  12. REBETOL [Suspect]
     Dosage: 200 MG, QOD
     Route: 048
     Dates: start: 20120414
  13. NEXIUM [Concomitant]
     Route: 048
  14. GASLON N [Concomitant]
     Indication: GASTRIC ULCER
     Dosage: FORMULATION : POR
     Route: 048
  15. AMARYL [Concomitant]
     Route: 048
  16. TELAVIC [Suspect]
     Route: 048
     Dates: start: 20120516, end: 20120517
  17. REBETOL [Suspect]
     Indication: HEPATITIS C
     Dosage: 400 MG, QD
     Route: 048
     Dates: start: 20120406, end: 20120409
  18. REBETOL [Suspect]
     Dosage: 200MG/EVERY OTHER DAY
     Route: 048
     Dates: start: 20120414, end: 20120612
  19. ANTIVIRAL (UNSPECIFIED) [Suspect]
     Dosage: 750 MG, QD
     Route: 048
     Dates: start: 20120516, end: 20120517
  20. TELMISARTAN [Concomitant]
     Indication: HYPERTENSION
     Dosage: 1 MG, QD
     Route: 048
  21. DEXTROSE (+) ELECTROLYTES (UNSPECIFIED) (+) SODIUM LACTATE [Concomitant]
     Indication: PRODUCT USED FOR UNKNOWN INDICATION
     Dosage: 1000 ML, QD
     Route: 042
     Dates: start: 20120409
  22. AMARYL [Concomitant]
     Indication: DIABETES MELLITUS
     Dosage: FORMULATION : POR
     Route: 048
  23. HIRUDOID [Concomitant]
     Indication: PROPHYLAXIS
     Dosage: PROPER QUANTITY
     Route: 061
     Dates: start: 20120406
  24. TELAVIC [Suspect]
     Route: 048
     Dates: start: 20120602, end: 20120629
  25. REBETOL [Suspect]
     Route: 048
     Dates: start: 20120613
  26. TELMISARTAN [Concomitant]
     Route: 048
  27. CONIEL [Concomitant]
     Indication: HYPERTENSION
     Dosage: FORMULATION : POR
     Route: 048
     Dates: start: 20120428, end: 20120503
  28. REBETOL [Suspect]
     Dosage: 200 MG, QD
     Route: 048
     Dates: start: 20120410, end: 20120413
  29. ANTIVIRAL (UNSPECIFIED) [Suspect]
     Dosage: 1000 MG, QD
     Route: 048
     Dates: start: 20120410, end: 20120413
  30. CONIEL [Concomitant]
     Route: 048
     Dates: start: 20120101, end: 20120427
  31. TELAVIC [Suspect]
     Indication: HEPATITIS C
     Route: 048
     Dates: start: 20120406, end: 20120409
  32. TELAVIC [Suspect]
     Route: 048
     Dates: start: 20120414, end: 20120515

REACTIONS (3)
  - RENAL DISORDER [None]
  - RASH [None]
  - DECREASED APPETITE [None]
